FAERS Safety Report 9000850 (Version 1)
Quarter: 2013Q1

REPORT INFORMATION
  Report Type: Spontaneous
  Country: US (occurrence: None)
  Receive Date: 20130103
  Receipt Date: 20130103
  Transmission Date: 20140127
  Serious: Yes (Hospitalization)
  Sender: FDA-Public Use
  Company Number: None

PATIENT
  Age: 57 Year
  Sex: Female
  Weight: 81.65 kg

DRUGS (1)
  1. JANUVIA [Suspect]

REACTIONS (5)
  - Pancreatitis acute [None]
  - Blood glucose increased [None]
  - Urine ketone body present [None]
  - Haematocrit decreased [None]
  - Haemoglobin decreased [None]
